FAERS Safety Report 6308991-9 (Version None)
Quarter: 2009Q3

REPORT INFORMATION
  Report Type: 
  Country: None (occurrence: None)
  Receive Date: 20090813
  Receipt Date: 20090810
  Transmission Date: 20100115
  Serious: Yes (Hospitalization)
  Sender: FDA-Public Use
  Company Number: ES-MERCK-0302ESP00034

PATIENT
  Age: 55 Year
  Sex: Female

DRUGS (4)
  1. SINGULAIR [Suspect]
     Indication: ASTHMA
     Route: 048
     Dates: start: 20000101, end: 20010217
  2. SINGULAIR [Suspect]
     Route: 048
     Dates: start: 20001001, end: 20010301
  3. OMEPRAZOLE [Concomitant]
     Indication: GASTROOESOPHAGEAL REFLUX DISEASE
     Route: 048
  4. OMEPRAZOLE [Concomitant]
     Indication: OESOPHAGITIS
     Route: 048

REACTIONS (1)
  - HEPATITIS ACUTE [None]
